FAERS Safety Report 5135319-2 (Version None)
Quarter: 2006Q4

REPORT INFORMATION
  Report Type: 
  Country: None (occurrence: None)
  Receive Date: 20061024
  Receipt Date: 20061024
  Transmission Date: 20070319
  Serious: Yes (Hospitalization)
  Sender: FDA-Public Use
  Company Number: None

PATIENT
  Age: 88 Year
  Sex: Male
  Weight: 61.2 kg

DRUGS (15)
  1. TERAZOSIN HCL [Suspect]
     Indication: PROSTATE CANCER
     Dosage: 10 MG QHS
     Dates: start: 19990101, end: 20060705
  2. FUROSEMIDE [Suspect]
     Dosage: 40 MG BID
  3. SIMVASTATIN [Concomitant]
  4. RANITIDINE HCL [Concomitant]
  5. FUROSEMIDE [Concomitant]
  6. POTASSIUM CHLORIDE [Concomitant]
  7. LISINOPRIL [Concomitant]
  8. TERAZOSIN HCL [Concomitant]
  9. ISOSORBIDE MONONITRATE [Concomitant]
  10. ASPIRIN [Concomitant]
  11. FLUOXETINE HCL [Concomitant]
  12. CARBIDOPA 50/LEVODOPA 200MG [Concomitant]
  13. ATENOLOL [Concomitant]
  14. ALBUTEROL 90/IPRATROP 18MCG [Concomitant]
  15. MULTI-VITAMIN [Concomitant]

REACTIONS (2)
  - DEHYDRATION [None]
  - DIZZINESS [None]
